FAERS Safety Report 6032643-6 (Version None)
Quarter: 2009Q1

REPORT INFORMATION
  Report Type: 
  Country: None (occurrence: None)
  Receive Date: 20090107
  Receipt Date: 20090107
  Transmission Date: 20090719
  Serious: No
  Sender: FDA-Public Use
  Company Number: None

PATIENT
  Sex: Female
  Weight: 57.73 kg

DRUGS (1)
  1. FOSAMAX [Suspect]
     Dosage: 70MG TABLET Q SUNDAY ORAL
     Dates: start: 20080827, end: 20090107

REACTIONS (1)
  - GASTROINTESTINAL DISORDER [None]
